FAERS Safety Report 6686441-0 (Version None)
Quarter: 2010Q2

REPORT INFORMATION
  Report Type: 
  Country: None (occurrence: None)
  Receive Date: 20100419
  Receipt Date: 20100412
  Transmission Date: 20101027
  Serious: Yes (Hospitalization)
  Sender: FDA-Public Use
  Company Number: B0646649A

PATIENT
  Sex: Male

DRUGS (17)
  1. ZOPHREN [Suspect]
     Dosage: 8MG EVERY TWO WEEKS
     Route: 042
     Dates: start: 20090525, end: 20091005
  2. CAMPTOSAR [Suspect]
     Dosage: 250MG EVERY TWO WEEKS
     Route: 042
     Dates: start: 20090525, end: 20091005
  3. AVASTIN [Suspect]
     Dosage: 310MG EVERY TWO WEEKS
     Route: 042
     Dates: start: 20090525, end: 20091005
  4. FLUOROURACIL [Suspect]
     Dosage: 3350MG EVERY TWO WEEKS
     Route: 042
     Dates: start: 20090525, end: 20091005
  5. CALCIUM LEVOFOLINATE [Suspect]
     Dosage: 336MG EVERY TWO WEEKS
     Route: 042
     Dates: start: 20090525, end: 20091005
  6. METHYLPREDNISOLONE [Suspect]
     Dosage: 80MG EVERY TWO WEEKS
     Route: 042
     Dates: start: 20090525, end: 20091005
  7. ATROPINE SULFATE [Suspect]
     Indication: NAUSEA
     Dosage: .25MG EVERY TWO WEEKS
     Route: 058
     Dates: start: 20090525, end: 20091005
  8. EMEND [Suspect]
     Indication: NAUSEA
     Route: 048
     Dates: start: 20090525, end: 20091005
  9. ZOLPIDEM [Concomitant]
     Dosage: 1UNIT PER DAY
     Route: 048
  10. DEROXAT [Concomitant]
     Dosage: 20MG PER DAY
     Route: 048
  11. DIFFU K [Concomitant]
     Dosage: 2UNIT THREE TIMES PER DAY
     Route: 048
  12. ACETAMINOPHEN [Concomitant]
     Dosage: 500MG FOUR TIMES PER DAY
     Route: 048
  13. TIORFAN [Concomitant]
     Dosage: 1UNIT THREE TIMES PER DAY
     Route: 048
  14. VOGALENE LYOC [Concomitant]
     Dosage: 1UNIT THREE TIMES PER DAY
     Route: 048
  15. DEBRIDAT [Concomitant]
     Dosage: 2SAC THREE TIMES PER DAY
     Route: 048
  16. CREON [Concomitant]
     Dosage: 25000U TWICE PER DAY
     Route: 065
  17. IMODIUM [Concomitant]
     Dosage: 3UNIT PER DAY
     Route: 065

REACTIONS (4)
  - ASTHENIA [None]
  - HEADACHE [None]
  - HEPATITIS CHOLESTATIC [None]
  - PARAESTHESIA [None]
